FAERS Safety Report 23045835 (Version 4)
Quarter: 2023Q4

REPORT INFORMATION
  Report Type: Spontaneous
  Country: GB (occurrence: GB)
  Receive Date: 20231009
  Receipt Date: 20231026
  Transmission Date: 20240110
  Serious: Yes (Disabling, Other)
  Sender: FDA-Public Use
  Company Number: GB-TORRENT-00033385

PATIENT
  Age: 58 Year
  Sex: Female

DRUGS (2)
  1. TOPIRAMATE [Suspect]
     Active Substance: TOPIRAMATE
     Indication: Migraine
     Dosage: 50 MG TWICE A DAY 3 TO 4 YEAR HISTORY
     Route: 048
  2. ESTROGENS [Concomitant]
     Active Substance: ESTROGENS
     Indication: Hormone replacement therapy
     Dosage: UNKNOWN
     Route: 065

REACTIONS (2)
  - Retinopathy [Not Recovered/Not Resolved]
  - Blindness day [Not Recovered/Not Resolved]
